FAERS Safety Report 6530247-X (Version None)
Quarter: 2010Q1

REPORT INFORMATION
  Report Type: 
  Country: None (occurrence: None)
  Receive Date: 20100107
  Receipt Date: 20091229
  Transmission Date: 20100710
  Serious: Yes (Hospitalization, Other)
  Sender: FDA-Public Use
  Company Number: US-PFIZER INC-2008156453

PATIENT
  Age: 44 Year
  Sex: Female

DRUGS (17)
  1. CHANTIX [Suspect]
     Indication: SMOKING CESSATION THERAPY
     Dosage: 0.5 MG, UNK
     Route: 048
     Dates: start: 20080101
  2. ZANTAC [Concomitant]
     Dosage: UNK
     Dates: start: 20010101
  3. XANAX [Concomitant]
     Dosage: UNK
  4. ULTRAM [Concomitant]
     Dosage: UNK
  5. NEURONTIN [Concomitant]
     Dosage: UNK
  6. COMBIVENT [Concomitant]
     Dosage: UNK
  7. ALBUTEROL [Concomitant]
     Dosage: UNK
  8. SPIRIVA [Concomitant]
     Dosage: UNK
  9. ADVAIR DISKUS 100/50 [Concomitant]
     Dosage: UNK
  10. LEXAPRO [Concomitant]
     Dosage: UNK
  11. SOMA [Concomitant]
     Dosage: UNK
  12. TOPAMAX [Concomitant]
     Dosage: UNK
  13. RELPAX [Concomitant]
     Dosage: UNK
  14. BACTRIM [Concomitant]
     Dosage: UNK
  15. OXYCONTIN [Concomitant]
     Dosage: UNK
  16. OXYCODONE [Concomitant]
     Dosage: UNK
  17. TOPROL-XL [Concomitant]
     Dosage: UNK

REACTIONS (3)
  - ASPHYXIA [None]
  - LUNG DISORDER [None]
  - PNEUMONIA [None]
